FAERS Safety Report 17643883 (Version 1)
Quarter: 2020Q2

REPORT INFORMATION
  Report Type: Spontaneous
  Country: US (occurrence: US)
  Receive Date: 20200408
  Receipt Date: 20200408
  Transmission Date: 20200713
  Serious: No
  Sender: FDA-Public Use
  Company Number: None

PATIENT
  Age: 63 Year
  Sex: Female
  Weight: 87.75 kg

DRUGS (6)
  1. EXEMESTANE. [Concomitant]
     Active Substance: EXEMESTANE
  2. IBRANCE [Suspect]
     Active Substance: PALBOCICLIB
     Indication: BREAST CANCER
     Route: 048
     Dates: start: 20200309
  3. GABAPENTIN. [Concomitant]
     Active Substance: GABAPENTIN
  4. MVI [Concomitant]
     Active Substance: VITAMINS
  5. PROTONIX [Concomitant]
     Active Substance: PANTOPRAZOLE SODIUM
  6. LISINOPRIL. [Concomitant]
     Active Substance: LISINOPRIL

REACTIONS (3)
  - Rash [None]
  - Alopecia [None]
  - Decreased appetite [None]

NARRATIVE: CASE EVENT DATE: 20200408
